FAERS Safety Report 24753858 (Version 1)
Quarter: 2024Q4

REPORT INFORMATION
  Report Type: Spontaneous
  Country: US (occurrence: None)
  Receive Date: 20241218
  Receipt Date: 20241218
  Transmission Date: 20250115
  Serious: No
  Sender: Public
  Company Number: None

PATIENT
  Age: 72 Year
  Sex: Female
  Weight: 54.9 kg

DRUGS (2)
  1. INLYTA [Suspect]
     Active Substance: AXITINIB
     Indication: Renal cancer
     Dosage: FREQUENCY : TWICE A DAY;?
     Route: 048
  2. INLYTA [Suspect]
     Active Substance: AXITINIB
     Indication: Renal cancer
     Dosage: 3 MG TWICE A DAY ORAL ?
     Route: 048

REACTIONS (3)
  - Dry skin [None]
  - Burning sensation [None]
  - Therapy change [None]

NARRATIVE: CASE EVENT DATE: 20241001
